FAERS Safety Report 5118205-3 (Version None)
Quarter: 2006Q3

REPORT INFORMATION
  Report Type: 
  Country: None (occurrence: None)
  Receive Date: 20060927
  Receipt Date: 20060919
  Transmission Date: 20061208
  Serious: Yes (Death)
  Sender: FDA-Public Use
  Company Number: 2006US-03839

PATIENT
  Age: 59 Year
  Sex: 0

DRUGS (1)
  1. ISOTRETINOIN [Suspect]

REACTIONS (1)
  - METASTATIC NEOPLASM [None]
